FAERS Safety Report 10926376 (Version 2)
Quarter: 2015Q1

REPORT INFORMATION
  Report Type: Spontaneous
  Country: NZ (occurrence: None)
  Receive Date: 20150316
  Receipt Date: 20150320
  Transmission Date: 20150721
  Serious: Yes (Death, Other)
  Sender: FDA-Public Use
  Company Number: 2015-10813

PATIENT

DRUGS (5)
  1. OMEPRAZOLE. [Concomitant]
     Active Substance: OMEPRAZOLE
  2. EYLEA [Suspect]
     Active Substance: AFLIBERCEPT
     Indication: DIABETIC RETINAL OEDEMA
     Route: 031
     Dates: start: 20131113
  3. SEREVENT (SALMETEROL XINAFOATE) [Concomitant]
  4. FELODIPINE. [Concomitant]
     Active Substance: FELODIPINE
  5. ONDANSETRON [Concomitant]
     Active Substance: ONDANSETRON

REACTIONS (2)
  - Pancreatic neoplasm [None]
  - Malignant neoplasm of ampulla of Vater [None]
